FAERS Safety Report 6004742-6 (Version None)
Quarter: 2008Q4

REPORT INFORMATION
  Report Type: 
  Country: None (occurrence: None)
  Receive Date: 20081216
  Receipt Date: 20081204
  Transmission Date: 20090506
  Serious: No
  Sender: FDA-Public Use
  Company Number: US-B.I. PHARMACEUTICALS,INC./RIDGEFIELD-2008-BP-15952BP

PATIENT
  Sex: Male

DRUGS (2)
  1. FLOMAX [Suspect]
  2. VIT D [Concomitant]
     Dates: start: 20080909

REACTIONS (1)
  - DRUG INEFFECTIVE [None]
